FAERS Safety Report 15216310 (Version 1)
Quarter: 2018Q3

REPORT INFORMATION
  Report Type: Spontaneous
  Country: DK (occurrence: DK)
  Receive Date: 20180730
  Receipt Date: 20180730
  Transmission Date: 20181010
  Serious: Yes (Other)
  Sender: FDA-Public Use
  Company Number: PHHY2018DK056987

PATIENT
  Age: 82 Year
  Sex: Male

DRUGS (5)
  1. OMEPRAZOL ACTAVIS [Concomitant]
     Active Substance: OMEPRAZOLE
     Indication: GASTRIC ULCER
     Dosage: 20 MG, QD
     Route: 048
     Dates: start: 20150505
  2. XGEVA [Suspect]
     Active Substance: DENOSUMAB
     Indication: ILL-DEFINED DISORDER
     Dosage: 120 MG, Q4W
     Route: 058
     Dates: start: 201601, end: 20180123
  3. LOSARTAN BLUEFISH [Concomitant]
     Active Substance: LOSARTAN
     Indication: HYPERTENSION
     Dosage: 100 MG, QD
     Route: 048
     Dates: start: 20110802
  4. UNIKALK SILVER [Concomitant]
     Indication: MINERAL SUPPLEMENTATION
     Dosage: 2 DF, QD (400 MG+19 UG)
     Route: 048
     Dates: start: 20180403
  5. ACLASTA [Suspect]
     Active Substance: ZOLEDRONIC ACID
     Indication: OSTEOPOROSIS
     Dosage: 5 MG, Q12MO
     Route: 042
     Dates: start: 20150420

REACTIONS (2)
  - Impaired healing [Recovered/Resolved]
  - Osteonecrosis of jaw [Recovered/Resolved]

NARRATIVE: CASE EVENT DATE: 2017
